FAERS Safety Report 16438006 (Version 1)
Quarter: 2019Q2

REPORT INFORMATION
  Report Type: Spontaneous
  Country: US (occurrence: US)
  Receive Date: 20190617
  Receipt Date: 20190617
  Transmission Date: 20190711
  Serious: Yes (Hospitalization)
  Sender: FDA-Public Use
  Company Number: US-SUN PHARMACEUTICAL INDUSTRIES LTD-2019R1-210704

PATIENT
  Age: 17 Year
  Sex: Male

DRUGS (2)
  1. OXCARBAZEPINE. [Suspect]
     Active Substance: OXCARBAZEPINE
     Indication: EPILEPSY
     Dosage: 300 MILLIGRAM, BID
     Route: 048
     Dates: start: 20190524
  2. OXCARBAZEPINE. [Suspect]
     Active Substance: OXCARBAZEPINE
     Dosage: 600 MILLIGRAM, BID
     Route: 048
     Dates: start: 20190531

REACTIONS (5)
  - International normalised ratio increased [Unknown]
  - Mental status changes [Unknown]
  - Prothrombin time prolonged [Unknown]
  - Drug ineffective [Unknown]
  - Thrombocytopenia [Unknown]
